FAERS Safety Report 10190790 (Version 1)
Quarter: 2014Q2

REPORT INFORMATION
  Report Type: Spontaneous
  Country: NL (occurrence: NL)
  Receive Date: 20140523
  Receipt Date: 20140523
  Transmission Date: 20141212
  Serious: Yes (Hospitalization)
  Sender: FDA-Public Use
  Company Number: NL-009507513-1405NLD010461

PATIENT
  Age: 75 Year
  Sex: Female
  Weight: 52 kg

DRUGS (2)
  1. SYNAPAUSE-E3 [Suspect]
     Dosage: 1 TIME A DAY 1 UNIT(S), EXTRA INFORMATION: INSERTION IN THE EVENING
     Route: 067
     Dates: start: 20131128, end: 20131218
  2. MAXALT SMELT 10 MG [Interacting]
     Indication: MIGRAINE
     Dosage: EXTRA INFORMATION: IF NEEDED 1
     Route: 048
     Dates: start: 1997

REACTIONS (1)
  - Migraine [Recovering/Resolving]
